FAERS Safety Report 7498376-4 (Version None)
Quarter: 2011Q2

REPORT INFORMATION
  Report Type: 
  Country: None (occurrence: None)
  Receive Date: 20110524
  Receipt Date: 20080620
  Transmission Date: 20111010
  Serious: Yes (Other)
  Sender: FDA-Public Use
  Company Number: US-BAYER-200826265NA

PATIENT
  Sex: Female
  Weight: 78 kg

DRUGS (15)
  1. TRASYLOL [Suspect]
     Indication: CORONARY ARTERY BYPASS
     Dosage: 1ML TEST DOSE
     Route: 042
     Dates: start: 20070110, end: 20070110
  2. HYDROCHLOROTHIAZIDE [Concomitant]
     Dosage: 12.5 MG/DAILY
     Route: 048
  3. LIPITOR [Concomitant]
     Dosage: 40 MG/AT BEDTIME
     Route: 048
  4. AMIODARONE HCL [Concomitant]
     Indication: SUPRAVENTRICULAR TACHYCARDIA
     Dosage: 150MG
     Route: 042
  5. ACETYLSALICYLIC ACID SRT [Concomitant]
     Dosage: 81 MG/DAILY
     Route: 048
  6. VERPAMIL HCL [Concomitant]
     Dosage: 10 MG/4ML
     Route: 013
  7. HEPARIN [Concomitant]
     Dosage: UNK
     Route: 042
  8. METOPROLOL SUCCINATE [Concomitant]
     Dosage: 50 MG/TWICE A DAY
     Route: 048
  9. ISOSORBIDE DINITRATE [Concomitant]
     Dosage: 20 MEQ/TWICE A DAY
     Route: 048
  10. RED BLOOD CELLS [Concomitant]
     Dosage: 3 UNITS
     Route: 042
     Dates: start: 20070110
  11. VANCOMYCIN [Concomitant]
     Dosage: 2GM
     Route: 061
  12. ANCEF [Concomitant]
     Dosage: 2GM
     Route: 042
  13. PLAVIX [Concomitant]
     Dosage: 75 MG/DAILY
     Route: 048
  14. FOSINOPRIL SODIUM [Concomitant]
     Dosage: 10MG/TWICE A DAY
     Route: 048
  15. NITROGLYCERIN [Concomitant]

REACTIONS (4)
  - UNEVALUABLE EVENT [None]
  - CEREBROVASCULAR ACCIDENT [None]
  - DEPRESSION [None]
  - INJURY [None]
